FAERS Safety Report 7427771-4 (Version None)
Quarter: 2011Q1

REPORT INFORMATION
  Report Type: 
  Country: None (occurrence: None)
  Receive Date: 20110302
  Receipt Date: 20110107
  Transmission Date: 20110831
  Serious: No
  Sender: FDA-Public Use
  Company Number: 025127

PATIENT
  Sex: Male
  Weight: 95.3 kg

DRUGS (2)
  1. CIMZIA [Suspect]
     Indication: CROHN'S DISEASE
     Dosage: 400 MG 1X/4 WEEKS SUBCUTANEOUS
     Route: 058
  2. IMURAN [Concomitant]

REACTIONS (2)
  - BRONCHITIS [None]
  - PYREXIA [None]
